FAERS Safety Report 11071895 (Version 1)
Quarter: 2015Q2

REPORT INFORMATION
  Report Type: Spontaneous
  Country: US (occurrence: None)
  Receive Date: 20150424
  Receipt Date: 20150424
  Transmission Date: 20150821
  Serious: Yes (Hospitalization)
  Sender: FDA-Public Use
  Company Number: FR-SERB-201500674

PATIENT
  Age: 73 Year
  Sex: Female

DRUGS (15)
  1. PROPOFOL. [Suspect]
     Active Substance: PROPOFOL
     Route: 042
     Dates: start: 20150317, end: 20150323
  2. NORDAZ [Concomitant]
     Active Substance: NORDAZEPAM
  3. LASILIX [Suspect]
     Active Substance: FUROSEMIDE
     Dates: start: 20150319
  4. AMOXICILLIN AND CLAVULANATE [Suspect]
     Active Substance: AMOXICILLIN\CLAVULANIC ACID
     Dates: start: 20150319
  5. LOVENOX [Concomitant]
     Active Substance: ENOXAPARIN SODIUM
  6. EFFEXOR [Concomitant]
     Active Substance: VENLAFAXINE HYDROCHLORIDE
  7. SUFENTANIL [Suspect]
     Active Substance: SUFENTANIL
     Dates: start: 20150317, end: 20150323
  8. CYANOKIT [Suspect]
     Active Substance: HYDROXOCOBALAMIN
     Indication: RESPIRATORY FUME INHALATION DISORDER
     Route: 042
     Dates: start: 20150317, end: 20150317
  9. NOVONORM [Concomitant]
     Active Substance: REPAGLINIDE
  10. STILNOX [Concomitant]
     Active Substance: ZOLPIDEM TARTRATE
  11. SUFENTANIL [Suspect]
     Active Substance: SUFENTANIL
  12. BYETTA [Concomitant]
     Active Substance: EXENATIDE
  13. OMEPRAZOLE. [Concomitant]
     Active Substance: OMEPRAZOLE
  14. LEVOPHED [Concomitant]
     Active Substance: NOREPINEPHRINE BITARTRATE
  15. MIDAZOLAM [Suspect]
     Active Substance: MIDAZOLAM\MIDAZOLAM HYDROCHLORIDE
     Dates: start: 20150317, end: 20150323

REACTIONS (1)
  - Acute kidney injury [None]

NARRATIVE: CASE EVENT DATE: 20150320
